FAERS Safety Report 4752598-1 (Version None)
Quarter: 2005Q3

REPORT INFORMATION
  Report Type: 
  Country: None (occurrence: None)
  Receive Date: 20050825
  Receipt Date: 20050816
  Transmission Date: 20060218
  Serious: Yes (Hospitalization)
  Sender: FDA-Public Use
  Company Number: JP-NOVOPROD-246331

PATIENT
  Sex: Female

DRUGS (1)
  1. NORDITROPIN NORDIFLEX [Suspect]
     Indication: TURNER'S SYNDROME
     Route: 058
     Dates: start: 20041101

REACTIONS (2)
  - PAPILLOEDEMA [None]
  - VITREOUS HAEMORRHAGE [None]
